FAERS Safety Report 19957781 (Version 1)
Quarter: 2021Q4

REPORT INFORMATION
  Report Type: Spontaneous
  Country: IT (occurrence: IT)
  Receive Date: 20211015
  Receipt Date: 20211015
  Transmission Date: 20220304
  Serious: Yes (Other)
  Sender: FDA-Public Use
  Company Number: IT-BAUSCH-BL-2021-033918

PATIENT
  Age: 87 Year
  Sex: Male

DRUGS (1)
  1. ISOPROTERENOL [Suspect]
     Active Substance: ISOPROTERENOL
     Indication: Bradycardia
     Route: 065

REACTIONS (1)
  - Stress cardiomyopathy [Recovered/Resolved]
